FAERS Safety Report 14627862 (Version 2)
Quarter: 2018Q1

REPORT INFORMATION
  Report Type: Spontaneous
  Country: FR (occurrence: FR)
  Receive Date: 20180307
  Receipt Date: 20180307
  Transmission Date: 20180509
  Serious: Yes (Other)
  Sender: FDA-Public Use
  Company Number: FR-CONCORDIA PHARMACEUTICALS INC.-E2B_00010368

PATIENT
  Age: 84 Year
  Sex: Male

DRUGS (9)
  1. G-CSF HUMAN RECOMBINANT [Concomitant]
  2. ALIMTA [Suspect]
     Active Substance: PEMETREXED DISODIUM
     Indication: THYMOMA MALIGNANT
     Route: 041
     Dates: start: 201709
  3. EMEND [Suspect]
     Active Substance: APREPITANT
     Indication: THYMOMA MALIGNANT
     Route: 048
     Dates: start: 201709
  4. PREDNISOLONE. [Suspect]
     Active Substance: PREDNISOLONE
     Indication: THYMOMA MALIGNANT
     Route: 048
     Dates: start: 201709
  5. SOMATULINE [Suspect]
     Active Substance: LANREOTIDE ACETATE
     Indication: OFF LABEL USE
     Dosage: NOT REPORTED
     Route: 058
     Dates: end: 2017
  6. FOLINIC ACID [Concomitant]
     Active Substance: LEUCOVORIN
  7. SOMATULINE [Suspect]
     Active Substance: LANREOTIDE ACETATE
     Indication: THYMOMA MALIGNANT
  8. AERIUS [Concomitant]
     Active Substance: DESLORATADINE
  9. CYANOCOBALAMIN. [Concomitant]
     Active Substance: CYANOCOBALAMIN

REACTIONS (3)
  - Retinopathy [Not Recovered/Not Resolved]
  - Off label use [Unknown]
  - Keratitis [Not Recovered/Not Resolved]

NARRATIVE: CASE EVENT DATE: 201801
